FAERS Safety Report 4320569-5 (Version None)
Quarter: 2004Q1

REPORT INFORMATION
  Report Type: 
  Country: None (occurrence: None)
  Receive Date: 20040319
  Receipt Date: 20040319
  Transmission Date: 20041129
  Serious: No
  Sender: FDA-Public Use
  Company Number: None

PATIENT
  Age: 43 Year
  Sex: Male
  Weight: 106.1417 kg

DRUGS (2)
  1. AVALIDE [Suspect]
     Indication: HYPERTENSION
     Dosage: 300/12.5 MG QD
     Dates: start: 20040308, end: 20040309
  2. MONOPRIL [Suspect]
     Indication: HYPERTENSION
     Dosage: 20 MG QD
     Dates: start: 20040308, end: 20040309

REACTIONS (1)
  - ANGIONEUROTIC OEDEMA [None]
